FAERS Safety Report 22131212 (Version 1)
Quarter: 2023Q1

REPORT INFORMATION
  Report Type: Spontaneous
  Country: US (occurrence: None)
  Receive Date: 20230322
  Receipt Date: 20230322
  Transmission Date: 20230417
  Serious: No
  Sender: FDA-Public Use
  Company Number: None

PATIENT
  Age: 65 Year
  Sex: Male
  Weight: 75.6 kg

DRUGS (3)
  1. RITUXAN [Suspect]
     Active Substance: RITUXIMAB
     Indication: Connective tissue disorder
     Route: 042
  2. Diphenhydramine 25MG IV [Concomitant]
  3. MAPAP 500MG TAB [Concomitant]

REACTIONS (3)
  - Respiratory tract infection [None]
  - Urinary tract infection [None]
  - Infusion related reaction [None]
